FAERS Safety Report 4356443-8 (Version None)
Quarter: 2004Q2

REPORT INFORMATION
  Report Type: 
  Country: None (occurrence: None)
  Receive Date: 20040512
  Receipt Date: 20040212
  Transmission Date: 20050107
  Serious: Yes (Hospitalization)
  Sender: FDA-Public Use
  Company Number: USA030946165

PATIENT
  Age: 70 Year
  Sex: Female
  Weight: 94.5 kg

DRUGS (14)
  1. RELAFEN [Suspect]
     Indication: OSTEOARTHRITIS
     Dosage: 1000MG TWICE PER DAY
     Route: 048
     Dates: start: 19990826
  2. VIOXX [Suspect]
     Indication: OSTEOARTHRITIS
     Dosage: 25MG PER DAY
     Route: 048
     Dates: end: 20030831
  3. PLAQUENIL [Concomitant]
     Dosage: 200MG TWICE PER DAY
  4. VICODIN [Concomitant]
  5. ASPIRIN [Concomitant]
     Dosage: 81MG PER DAY
  6. DIOVAN HCT [Concomitant]
  7. NEURONTIN [Concomitant]
     Dosage: 300MG FOUR TIMES PER DAY
  8. ULTRAM [Concomitant]
  9. SYNTHROID [Concomitant]
     Dosage: .2MG PER DAY
  10. LASIX [Concomitant]
  11. NORVASC [Concomitant]
     Dosage: 5MG PER DAY
  12. PREMARIN [Concomitant]
  13. ALLEGRA [Concomitant]
  14. CALCIUM [Concomitant]

REACTIONS (6)
  - DIZZINESS [None]
  - FALL [None]
  - FEELING ABNORMAL [None]
  - MEDICATION ERROR [None]
  - RETCHING [None]
  - VERTIGO [None]
